FAERS Safety Report 7329811-X (Version None)
Quarter: 2011Q1

REPORT INFORMATION
  Report Type: 
  Country: None (occurrence: None)
  Receive Date: 20110303
  Receipt Date: 20110207
  Transmission Date: 20110831
  Serious: No
  Sender: FDA-Public Use
  Company Number: US-B.I. PHARMACEUTICALS,INC./RIDGEFIELD-2011-BP-03872BP

PATIENT
  Sex: Male

DRUGS (6)
  1. PRADAXA [Suspect]
     Indication: ATRIAL FIBRILLATION
     Dosage: 300 MG
     Route: 048
     Dates: start: 20110112
  2. OMEPRAZOLE [Concomitant]
     Indication: GASTROOESOPHAGEAL REFLUX DISEASE
     Dosage: 40 MG
     Route: 048
  3. BENICAR [Concomitant]
     Indication: HYPERTENSION
     Route: 048
  4. METOPROLOL [Concomitant]
     Indication: ATRIAL FIBRILLATION
     Dosage: 400 MG
     Route: 048
  5. DIGOXIN [Concomitant]
     Indication: HYPERTENSION
     Dosage: 250 MG
     Route: 048
  6. CARDIZEM [Concomitant]
     Indication: HYPERTENSION
     Dosage: 360 MG
     Route: 048

REACTIONS (4)
  - RECTAL HAEMORRHAGE [None]
  - DYSPEPSIA [None]
  - NAUSEA [None]
  - ANAL PRURITUS [None]
